FAERS Safety Report 9649009 (Version 2)
Quarter: 2013Q4

REPORT INFORMATION
  Report Type: Spontaneous
  Country: NL (occurrence: NL)
  Receive Date: 20131028
  Receipt Date: 20131114
  Transmission Date: 20140711
  Serious: Yes (Hospitalization, Other)
  Sender: FDA-Public Use
  Company Number: NL-ASTRAZENECA-2013SE76769

PATIENT
  Age: 22 Year
  Sex: Female

DRUGS (1)
  1. EMLA CREAM [Suspect]
     Indication: ANALGESIC THERAPY
     Dosage: THREE 30 G TUBES
     Route: 061

REACTIONS (2)
  - Overdose [Unknown]
  - Methaemoglobinaemia [Recovered/Resolved]
